FAERS Safety Report 4742832-6 (Version None)
Quarter: 2005Q3

REPORT INFORMATION
  Report Type: 
  Country: None (occurrence: None)
  Receive Date: 20050811
  Receipt Date: 20050803
  Transmission Date: 20060218
  Serious: Yes (Life-Threatening)
  Sender: FDA-Public Use
  Company Number: FR-GLAXOSMITHKLINE-B0390106A

PATIENT
  Age: 64 Year
  Sex: Male
  Weight: 82 kg

DRUGS (5)
  1. AUGMENTIN '125' [Suspect]
     Route: 042
     Dates: start: 20050511, end: 20050511
  2. ULTIVA [Concomitant]
     Route: 042
     Dates: start: 20050511, end: 20050511
  3. DIPRIVAN [Concomitant]
     Route: 042
     Dates: start: 20050511, end: 20050511
  4. XYLOCAINE [Concomitant]
     Route: 042
     Dates: start: 20050511, end: 20050511
  5. BETADINE [Concomitant]
     Indication: PREOPERATIVE CARE
     Route: 050
     Dates: start: 20050511, end: 20050511

REACTIONS (6)
  - ANAPHYLACTIC SHOCK [None]
  - BRONCHOSPASM [None]
  - CIRCULATORY COLLAPSE [None]
  - HYPOTENSION [None]
  - RASH [None]
  - TACHYCARDIA [None]
